FAERS Safety Report 16079352 (Version 1)
Quarter: 2019Q1

REPORT INFORMATION
  Report Type: Spontaneous
  Country: PT (occurrence: PT)
  Receive Date: 20190315
  Receipt Date: 20190315
  Transmission Date: 20190418
  Serious: Yes (Life-Threatening, Other)
  Sender: FDA-Public Use
  Company Number: PT-ASTRAZENECA-2019SE42252

PATIENT
  Age: 73 Year
  Sex: Female

DRUGS (2)
  1. IRESSA [Suspect]
     Active Substance: GEFITINIB
     Dosage: 250.0MG UNKNOWN
     Route: 048
     Dates: start: 20180726, end: 20180729
  2. TAGRISSO [Suspect]
     Active Substance: OSIMERTINIB
     Route: 048
     Dates: start: 20180814, end: 20180924

REACTIONS (3)
  - Vomiting [Unknown]
  - Pneumonitis [Unknown]
  - Skin toxicity [Unknown]
